FAERS Safety Report 17063037 (Version 1)
Quarter: 2019Q4

REPORT INFORMATION
  Report Type: Spontaneous
  Country: US (occurrence: US)
  Receive Date: 20191121
  Receipt Date: 20191121
  Transmission Date: 20200122
  Serious: No
  Sender: FDA-Public Use
  Company Number: None

PATIENT
  Age: 33 Year
  Sex: Female
  Weight: 49.53 kg

DRUGS (2)
  1. MAVYRET [Suspect]
     Active Substance: GLECAPREVIR\PIBRENTASVIR
     Dates: start: 20191105, end: 20191121
  2. MAVYRET [Suspect]
     Active Substance: GLECAPREVIR\PIBRENTASVIR
     Indication: CHRONIC HEPATITIS C
     Dosage: DOSE OR AMOUNT= 3 TOT
     Route: 048
     Dates: start: 20191105, end: 20191121

REACTIONS (2)
  - Eye pruritus [None]
  - Ocular icterus [None]

NARRATIVE: CASE EVENT DATE: 20191119
